FAERS Safety Report 8024012-4 (Version None)
Quarter: 2011Q4

REPORT INFORMATION
  Report Type: 
  Country: None (occurrence: None)
  Receive Date: 20111230
  Receipt Date: 20111219
  Transmission Date: 20120403
  Serious: Yes (Hospitalization)
  Sender: FDA-Public Use
  Company Number: DSJ-2011-26893

PATIENT
  Age: 4 Decade
  Sex: Female

DRUGS (6)
  1. METHIAZIDE (INGREDIENT UNKNOWN) [Concomitant]
  2. FUROSEMIDE [Concomitant]
  3. BEXTAXOLOL (BETAXOLOL) (BETAXOLOL) [Concomitant]
  4. OLMESARTAN MEDOXOMIL [Suspect]
     Indication: HYPERTENSION
     Dosage: PER ORAL
     Route: 048
  5. AMLODIPINE BESYLATE [Concomitant]
  6. ALISKIREN (ALISKIREN) (ALISKIREN) [Concomitant]

REACTIONS (4)
  - DRUG ERUPTION [None]
  - RENAL ARTERY STENOSIS [None]
  - RENAL IMPAIRMENT [None]
  - MALAISE [None]
